FAERS Safety Report 23670479 (Version 3)
Quarter: 2024Q3

REPORT INFORMATION
  Report Type: Report from Study
  Country: NL (occurrence: NL)
  Receive Date: 20240326
  Receipt Date: 20240910
  Transmission Date: 20241017
  Serious: Yes (Other)
  Sender: ABBVIE
  Company Number: NL-ABBVIE-5688685

PATIENT
  Sex: Male

DRUGS (9)
  1. CARBIDOPA\LEVODOPA [Suspect]
     Active Substance: CARBIDOPA\LEVODOPA
     Indication: Parkinson^s disease
     Dosage: MD 12.0 ML; CD 2.2 ML/H; ED 2.2 ML; NMD 0.0ML; CND 1.4ML/H; END 1.0ML? DURATION TEXT: REMAINS AT ...
     Route: 050
     Dates: start: 20240805, end: 20240903
  2. CARBIDOPA\LEVODOPA [Suspect]
     Active Substance: CARBIDOPA\LEVODOPA
     Dosage: MD 12.0 ML; CD 2.2 ML/H; ED 2.2 ML; NMD 0.0ML; CND 1.4ML/H; ED 1.0ML,?DURATION TEXT: REMAINS AT 2...
     Route: 050
     Dates: start: 20240115, end: 20240319
  3. CARBIDOPA\LEVODOPA [Suspect]
     Active Substance: CARBIDOPA\LEVODOPA
     Dosage: MD 6.0 ML; CD 2.2 ML/H; ED 2.2 ML; ND 0.0ML; CND 1.4ML/H; END 1.0ML?DURATION TEXT: REMAINS AT 24 ...
     Route: 050
     Dates: start: 20240903
  4. CARBIDOPA\LEVODOPA [Suspect]
     Active Substance: CARBIDOPA\LEVODOPA
     Dosage: MD 12.0 ML; CD 2.2 ML/H; ED 2.2 ML; NMD 0.0ML; CND 1.4ML/H; END 1.0ML
     Route: 050
     Dates: start: 20180703
  5. CARBIDOPA\LEVODOPA [Suspect]
     Active Substance: CARBIDOPA\LEVODOPA
     Dosage: MD 12.0 ML; CD 2.2 ML/H; ED 2.2 ML; NMD 0.0ML; CND 1.4ML/H; ED 1.0ML,?DURATION TEXT: REMAINS AT 2...
     Route: 050
     Dates: start: 20240108, end: 20240115
  6. CARBIDOPA\LEVODOPA [Suspect]
     Active Substance: CARBIDOPA\LEVODOPA
     Dosage: MD 12.0 ML; CD 2.2 ML/H; ED 2.2 ML; NMD 0.0ML; CND 1.4ML/H; ED 1.0ML,?DURATION TEXT: REMAINS AT 2...
     Route: 050
     Dates: start: 20240319, end: 20240805
  7. ROPINIROLE [Concomitant]
     Active Substance: ROPINIROLE
     Indication: Product used for unknown indication
  8. EXELON [Concomitant]
     Active Substance: RIVASTIGMINE TARTRATE
     Indication: Product used for unknown indication
  9. LOPERAMIDE [Concomitant]
     Active Substance: LOPERAMIDE
     Indication: Abnormal faeces
     Dosage: FREQUENCY TEXT: IF NECESSARY

REACTIONS (27)
  - Cardiac failure [Recovering/Resolving]
  - Incontinence [Not Recovered/Not Resolved]
  - Speech disorder [Not Recovered/Not Resolved]
  - Loss of personal independence in daily activities [Not Recovered/Not Resolved]
  - On and off phenomenon [Not Recovered/Not Resolved]
  - Muscular weakness [Not Recovered/Not Resolved]
  - Stress [Not Recovered/Not Resolved]
  - Fluid intake reduced [Recovered/Resolved]
  - Memory impairment [Not Recovered/Not Resolved]
  - Dyskinesia [Not Recovered/Not Resolved]
  - Unevaluable event [Not Recovered/Not Resolved]
  - Poor quality sleep [Recovering/Resolving]
  - Tremor [Not Recovered/Not Resolved]
  - Faeces hard [Not Recovered/Not Resolved]
  - Muscle rigidity [Not Recovered/Not Resolved]
  - Appetite disorder [Not Recovered/Not Resolved]
  - Delusion [Not Recovered/Not Resolved]
  - Parkinson^s disease [Unknown]
  - Bladder catheterisation [Not Recovered/Not Resolved]
  - Disturbance in attention [Not Recovered/Not Resolved]
  - Diarrhoea [Not Recovered/Not Resolved]
  - Fall [Not Recovered/Not Resolved]
  - Intentional device misuse [Not Recovered/Not Resolved]
  - Hallucination [Not Recovered/Not Resolved]
  - Freezing phenomenon [Not Recovered/Not Resolved]
  - Cognitive disorder [Not Recovered/Not Resolved]
  - Abnormal dreams [Unknown]

NARRATIVE: CASE EVENT DATE: 20240401
